FAERS Safety Report 6270523-1 (Version None)
Quarter: 2009Q3

REPORT INFORMATION
  Report Type: 
  Country: None (occurrence: None)
  Receive Date: 20090716
  Receipt Date: 20090710
  Transmission Date: 20100115
  Serious: Yes (Other)
  Sender: FDA-Public Use
  Company Number: US-ASTRAZENECA-2009UW19387

PATIENT
  Age: 21 Day
  Sex: Male
  Weight: 2.8 kg

DRUGS (1)
  1. MERREM I.V. [Suspect]
     Indication: URINARY TRACT INFECTION BACTERIAL
     Dosage: 100 MG/KG
     Route: 042

REACTIONS (1)
  - ACCIDENTAL OVERDOSE [None]
